FAERS Safety Report 5828008-X (Version None)
Quarter: 2008Q3

REPORT INFORMATION
  Report Type: 
  Country: None (occurrence: None)
  Receive Date: 20080728
  Receipt Date: 20080721
  Transmission Date: 20090109
  Serious: Yes (Hospitalization)
  Sender: FDA-Public Use
  Company Number: CIO08012611

PATIENT
  Age: 52 Year
  Sex: Female

DRUGS (1)
  1. METAMUCIL-2 [Suspect]
     Dosage: DOSE, 1/DAY FOR 1 DAY, ORAL
     Route: 048
     Dates: start: 20080714, end: 20080714

REACTIONS (3)
  - GASTROINTESTINAL PAIN [None]
  - INTESTINAL OBSTRUCTION [None]
  - WRONG TECHNIQUE IN DRUG USAGE PROCESS [None]
